FAERS Safety Report 7729799-3 (Version None)
Quarter: 2011Q3

REPORT INFORMATION
  Report Type: 
  Country: None (occurrence: None)
  Receive Date: 20110901
  Receipt Date: 20110901
  Transmission Date: 20111222
  Serious: Yes (Life-Threatening, Hospitalization, Disabling)
  Sender: FDA-Public Use
  Company Number: None

PATIENT
  Age: 41 Year
  Sex: Male

DRUGS (1)
  1. VOLTAREN [Suspect]
     Indication: ARTHRITIS
     Dosage: 75 MG TWICE DAILY ORAL
     Route: 048
     Dates: start: 20050101, end: 20090618

REACTIONS (6)
  - AORTIC RUPTURE [None]
  - INTESTINAL PERFORATION [None]
  - HAEMOPTYSIS [None]
  - LOSS OF CONSCIOUSNESS [None]
  - LIVER DISORDER [None]
  - GALLBLADDER DISORDER [None]
